FAERS Safety Report 25618974 (Version 1)
Quarter: 2025Q3

REPORT INFORMATION
  Report Type: Spontaneous
  Country: EC (occurrence: EC)
  Receive Date: 20250729
  Receipt Date: 20250729
  Transmission Date: 20251021
  Serious: Yes (Other)
  Sender: AMGEN
  Company Number: EC-AMGEN-ECUSP2025146043

PATIENT
  Sex: Female

DRUGS (1)
  1. PROLIA [Suspect]
     Active Substance: DENOSUMAB
     Indication: Osteoporosis
     Dosage: 60 MILLIGRAM, Q6MO/ 6.00 MONTHS (1 ML X 1 INY X 1 JER)
     Route: 058
     Dates: start: 2025, end: 2025

REACTIONS (1)
  - Macular detachment [Unknown]

NARRATIVE: CASE EVENT DATE: 20250101
